FAERS Safety Report 8839721 (Version 1)
Quarter: 2012Q4

REPORT INFORMATION
  Report Type: Spontaneous
  Country: US (occurrence: None)
  Receive Date: 20121011
  Receipt Date: 20121011
  Transmission Date: 20130627
  Serious: No
  Sender: FDA-Public Use
  Company Number: None

PATIENT
  Age: 60 Year
  Sex: Female

DRUGS (1)
  1. SYNTHROID [Suspect]
     Indication: HASHIMOTO^S DISEASE
     Dosage: one pill once a day po
     Route: 048

REACTIONS (2)
  - Presyncope [None]
  - Fear [None]
